FAERS Safety Report 4378443-4 (Version None)
Quarter: 2004Q2

REPORT INFORMATION
  Report Type: 
  Country: None (occurrence: None)
  Receive Date: 20040609
  Receipt Date: 20040528
  Transmission Date: 20050107
  Serious: Yes (Death)
  Sender: FDA-Public Use
  Company Number: 04P-163-0253663-00

PATIENT
  Age: 59 Year
  Sex: Female
  Weight: 79.3795 kg

DRUGS (6)
  1. TRICOR [Suspect]
     Indication: BLOOD TRIGLYCERIDES INCREASED
     Dates: start: 20031225, end: 20040309
  2. GLUCOPHAGE [Concomitant]
  3. MAXZIDE [Concomitant]
  4. DILTIAZEM [Concomitant]
  5. CELECOXIB [Concomitant]
  6. LEVOTHYROXINE SODIUM [Concomitant]

REACTIONS (7)
  - ANOREXIA [None]
  - AUTOIMMUNE HEPATITIS [None]
  - LIVER TRANSPLANT [None]
  - NAUSEA [None]
  - POST PROCEDURAL COMPLICATION [None]
  - SEPSIS [None]
  - WEIGHT DECREASED [None]
